FAERS Safety Report 7591445-X (Version None)
Quarter: 2011Q3

REPORT INFORMATION
  Report Type: 
  Country: None (occurrence: None)
  Receive Date: 20110701
  Receipt Date: 20110701
  Transmission Date: 20111222
  Serious: Yes (Other)
  Sender: FDA-Public Use
  Company Number: None

PATIENT
  Age: 31 Year
  Sex: Female
  Weight: 70.3075 kg

DRUGS (1)
  1. MIRENA [Suspect]
     Indication: CONTRACEPTION
     Dates: start: 20090201, end: 20110222

REACTIONS (15)
  - WEIGHT INCREASED [None]
  - IRRITABILITY [None]
  - WITHDRAWAL SYNDROME [None]
  - MAJOR DEPRESSION [None]
  - DISTURBANCE IN ATTENTION [None]
  - MOOD SWINGS [None]
  - MYALGIA [None]
  - HAEMATOCHEZIA [None]
  - DIZZINESS [None]
  - ANXIETY [None]
  - INSOMNIA [None]
  - ARTHRALGIA [None]
  - LOSS OF LIBIDO [None]
  - HYPERHIDROSIS [None]
  - ABDOMINAL DISTENSION [None]
